FAERS Safety Report 8183649-2 (Version None)
Quarter: 2012Q1

REPORT INFORMATION
  Report Type: 
  Country: None (occurrence: None)
  Receive Date: 20120130
  Receipt Date: 20111109
  Transmission Date: 20120608
  Serious: Yes (Other)
  Sender: FDA-Public Use
  Company Number: 045438

PATIENT
  Sex: Female

DRUGS (2)
  1. KEPPRA [Suspect]
     Dosage: 1 TABLET IN THE MORNING AND 1 TABLET IN THE NIGHT
     Dates: start: 20080101, end: 20110601
  2. KEPPRA [Suspect]
     Dosage: 2 TABLETS IN THE MORNING
     Dates: start: 20110601

REACTIONS (3)
  - FEELING ABNORMAL [None]
  - CONVULSION [None]
  - SLEEP DISORDER [None]
